FAERS Safety Report 9124471 (Version 1)
Quarter: 2013Q1

REPORT INFORMATION
  Report Type: Spontaneous
  Country: US (occurrence: US)
  Receive Date: 20130116
  Receipt Date: 20130116
  Transmission Date: 20140127
  Serious: Yes (Death)
  Sender: FDA-Public Use
  Company Number: US-ROXANE LABORATORIES, INC.-2013-RO-00057RO

PATIENT
  Age: 57 Year
  Sex: Female

DRUGS (9)
  1. CITALOPRAM [Suspect]
  2. QUETIAPINE FUMARATE [Suspect]
  3. KEPPRA [Suspect]
  4. DIPHENHYDRAMINE [Suspect]
  5. ETHANOL [Suspect]
  6. LAMOTRIGINE [Suspect]
  7. MEMANTINE [Suspect]
  8. TRAZODONE [Suspect]
  9. VERAPAMIL [Suspect]

REACTIONS (2)
  - Intentional overdose [Fatal]
  - Completed suicide [Fatal]
